FAERS Safety Report 25260338 (Version 2)
Quarter: 2025Q2

REPORT INFORMATION
  Report Type: Report from Study
  Country: US (occurrence: US)
  Receive Date: 20250501
  Receipt Date: 20250505
  Transmission Date: 20250716
  Serious: Yes (Other)
  Sender: UCB
  Company Number: US-UCBSA-2025025343

PATIENT
  Age: 43 Year
  Sex: Female
  Weight: 86.6 kg

DRUGS (1)
  1. FINTEPLA [Suspect]
     Active Substance: FENFLURAMINE
     Indication: Seizure
     Dates: start: 202411

REACTIONS (2)
  - Pulmonary valve incompetence [Not Recovered/Not Resolved]
  - Cardiac valve fibroelastoma [Not Recovered/Not Resolved]

NARRATIVE: CASE EVENT DATE: 20250421
